FAERS Safety Report 15787099 (Version 2)
Quarter: 2019Q1

REPORT INFORMATION
  Report Type: Report from Study
  Country: BR (occurrence: BR)
  Receive Date: 20190103
  Receipt Date: 20190213
  Transmission Date: 20190417
  Serious: Yes (Hospitalization, Other)
  Sender: FDA-Public Use
  Company Number: BR-B.I. PHARMACEUTICALS,INC./RIDGEFIELD-2018-BI-060349

PATIENT
  Age: 78 Year
  Sex: Female
  Weight: 50 kg

DRUGS (10)
  1. ALOPURINOL [Concomitant]
     Active Substance: ALLOPURINOL
     Indication: GOUT
     Route: 048
     Dates: start: 2012
  2. DABIGATRAN [Suspect]
     Active Substance: DABIGATRAN
     Indication: ATRIAL FIBRILLATION
     Route: 048
     Dates: start: 20160324, end: 20181017
  3. FUROSEMIDA [Concomitant]
     Active Substance: FUROSEMIDE
     Indication: ISCHAEMIC CARDIOMYOPATHY
     Route: 048
     Dates: start: 20160804
  4. AAS [Concomitant]
     Active Substance: ASPIRIN
     Indication: CORONARY ARTERY DISEASE
     Route: 048
     Dates: start: 20170324
  5. CARVEDILOL. [Concomitant]
     Active Substance: CARVEDILOL
     Indication: ISCHAEMIC CARDIOMYOPATHY
     Dosage: DAILY DOSE: 100 MILLIGRAM?FREQUENCY: 50 MG (MORNING) AND 25 MG (AT NIGHT)
     Route: 048
     Dates: start: 20160719
  6. LEVO-TIROXINA [Concomitant]
     Indication: HYPOTHYROIDISM
     Route: 048
     Dates: start: 2014
  7. ESPIRONOLACTONA [Concomitant]
     Active Substance: SPIRONOLACTONE
     Indication: ISCHAEMIC CARDIOMYOPATHY
     Route: 048
     Dates: start: 1999
  8. OMEPRAZOL [Concomitant]
     Active Substance: OMEPRAZOLE
     Indication: PROPHYLAXIS
     Dosage: DAILY DOSE: 40 MILLIGRAM
     Route: 048
     Dates: start: 20160727
  9. ATORVASTATINA [Concomitant]
     Active Substance: ATORVASTATIN
     Indication: DYSLIPIDAEMIA
     Route: 048
     Dates: start: 1999
  10. LOSARTAN. [Concomitant]
     Active Substance: LOSARTAN
     Indication: ISCHAEMIC CARDIOMYOPATHY
     Route: 048
     Dates: start: 20170324

REACTIONS (4)
  - Colon neoplasm [Unknown]
  - Anaemia [Not Recovered/Not Resolved]
  - Melaena [Recovered/Resolved]
  - Angina pectoris [Not Recovered/Not Resolved]

NARRATIVE: CASE EVENT DATE: 20181017
